FAERS Safety Report 4384299-6 (Version None)
Quarter: 2004Q2

REPORT INFORMATION
  Report Type: 
  Country: None (occurrence: None)
  Receive Date: 20040624
  Receipt Date: 20040621
  Transmission Date: 20050107
  Serious: Yes (Disabling)
  Sender: FDA-Public Use
  Company Number: GB-ROCHE-371612

PATIENT
  Age: 38 Year
  Sex: Male
  Weight: 93 kg

DRUGS (1)
  1. ROACCUTANE [Suspect]
     Indication: ACNE
     Route: 048
     Dates: start: 20030115, end: 20030215

REACTIONS (1)
  - LOSS OF LIBIDO [None]
